FAERS Safety Report 18651497 (Version 1)
Quarter: 2020Q4

REPORT INFORMATION
  Report Type: Report from Study
  Country: FR (occurrence: FR)
  Receive Date: 20201222
  Receipt Date: 20201222
  Transmission Date: 20210114
  Serious: Yes (Other)
  Sender: FDA-Public Use
  Company Number: FR-MYLANLABS-2020M1103970

PATIENT
  Age: 50 Year
  Sex: Male

DRUGS (4)
  1. IMMUNOGLOBULINS NOS [Suspect]
     Active Substance: IMMUNE GLOBULIN NOS
     Indication: LICHEN MYXOEDEMATOSUS
     Dosage: 2 GRAM PER KILOGRAM, MONTHLY
     Route: 042
  2. CYCLOPHOSPHAMIDE. [Suspect]
     Active Substance: CYCLOPHOSPHAMIDE
     Indication: LICHEN MYXOEDEMATOSUS
     Dosage: 300 MILLIGRAM/SQ. METER, QD(ON DAYS 1, 8, 15 + 22)
     Route: 048
  3. DEXAMETHASONE. [Suspect]
     Active Substance: DEXAMETHASONE
     Indication: LICHEN MYXOEDEMATOSUS
     Dosage: 40 MILLIGRAM(ON DAYS 1, 8, 15 +  22)
     Route: 048
  4. BORTEZOMIB. [Suspect]
     Active Substance: BORTEZOMIB
     Indication: LICHEN MYXOEDEMATOSUS
     Dosage: 1.3 MILLIGRAM/SQ. METER,(ON DAYS 1, 4, 8 + 11)
     Route: 042

REACTIONS (2)
  - Off label use [Unknown]
  - Drug ineffective [Unknown]
